FAERS Safety Report 9767561 (Version 1)
Quarter: 2013Q3

REPORT INFORMATION
  Report Type: Spontaneous
  Country: FR (occurrence: None)
  Receive Date: 20130827
  Receipt Date: 20130827
  Transmission Date: 20140515
  Serious: Yes (Other)
  Sender: FDA-Public Use
  Company Number: 056-21880-13060766

PATIENT
  Age: 79 Year
  Sex: Female

DRUGS (6)
  1. REVLIMID [Suspect]
     Indication: B-CELL LYMPHOMA
     Route: 048
     Dates: start: 20120525
  2. ASPIRINE (ACETYLSALICYLIC ACID) [Concomitant]
  3. DAFALGAN CODEINE (PANADEINE CO) [Concomitant]
  4. TANAKAN (GINKGO BILOBA EXTRACT) [Concomitant]
  5. CACIT VITAMIN D3 (LEKOVIT CA) [Concomitant]
  6. CLARADOL CAFEINE (PARA-SELTZER) [Concomitant]

REACTIONS (1)
  - Basal cell carcinoma [None]
